FAERS Safety Report 11277065 (Version 2)
Quarter: 2015Q3

REPORT INFORMATION
  Report Type: Spontaneous
  Country: US (occurrence: US)
  Receive Date: 20150716
  Receipt Date: 20150716
  Transmission Date: 20151125
  Serious: Yes (Death, Other)
  Sender: FDA-Public Use
  Company Number: US-APOTEX-2015AP010620

PATIENT

DRUGS (4)
  1. VALPROIC ACID ORAL SOLUTION USP [Suspect]
     Active Substance: VALPROIC ACID
     Indication: MANIA
     Route: 065
  2. LITHIUM CARBONATE. [Suspect]
     Active Substance: LITHIUM CARBONATE
     Indication: MANIA
     Route: 065
  3. HALOPERIDOL. [Suspect]
     Active Substance: HALOPERIDOL
     Indication: MANIA
     Route: 065
  4. OLANZAPINE. [Suspect]
     Active Substance: OLANZAPINE
     Indication: MANIA
     Route: 065

REACTIONS (7)
  - Drug intolerance [Unknown]
  - Treatment failure [Unknown]
  - Suicide attempt [Unknown]
  - Bone marrow failure [Unknown]
  - Intestinal adenocarcinoma [Fatal]
  - Neuroleptic malignant syndrome [Unknown]
  - Catatonia [Unknown]
